FAERS Safety Report 9462156 (Version 1)
Quarter: 2013Q3

REPORT INFORMATION
  Report Type: Spontaneous
  Country: US (occurrence: None)
  Receive Date: 20130815
  Receipt Date: 20130815
  Transmission Date: 20140515
  Serious: Yes (Hospitalization)
  Sender: FDA-Public Use
  Company Number: None

PATIENT
  Age: 95 Year
  Sex: Female
  Weight: 87.2 kg

DRUGS (10)
  1. HUMALOG [Suspect]
     Indication: DIABETES MELLITUS
     Dosage: 2 UNITS  SS FOR BS OF 200
     Route: 058
  2. NPH INSULIN [Suspect]
     Indication: DIABETES MELLITUS
     Dosage: 12 UNITS QAM
     Route: 058
  3. HYDRALAZINE [Concomitant]
  4. NORVASC [Concomitant]
  5. CLONIDINE [Concomitant]
  6. DILTIAZEM [Concomitant]
  7. MELATONIN [Concomitant]
  8. SERTRALINE [Concomitant]
  9. ZOFRAN [Concomitant]
  10. SEROQUEL [Concomitant]

REACTIONS (2)
  - Hypoglycaemia [None]
  - Urinary tract infection [None]
